FAERS Safety Report 16490814 (Version 1)
Quarter: 2019Q3

REPORT INFORMATION
  Report Type: Spontaneous
  Country: US (occurrence: US)
  Receive Date: 20190627
  Receipt Date: 20190627
  Transmission Date: 20191004
  Serious: Yes (Disabling)
  Sender: FDA-Public Use
  Company Number: None

PATIENT
  Age: 55 Year
  Sex: Female
  Weight: 78.75 kg

DRUGS (5)
  1. ESTROGEN [Concomitant]
     Active Substance: ESTROGENS
  2. VITAMIN D [Concomitant]
     Active Substance: VITAMIN D NOS
  3. PROGESTERONE. [Concomitant]
     Active Substance: PROGESTERONE
  4. SOMADERM GEL [Suspect]
     Active Substance: HOMEOPATHICS
     Indication: THERAPEUTIC SKIN CARE TOPICAL
     Dosage: ?          OTHER STRENGTH:HOMEOPATHIC;QUANTITY:2 1 FULL PUMP;?
     Route: 061
     Dates: start: 20180312, end: 20180930
  5. MULTIVITAMIN [Concomitant]
     Active Substance: VITAMINS

REACTIONS (3)
  - Weight increased [None]
  - Breast enlargement [None]
  - Vaginal haemorrhage [None]
